FAERS Safety Report 4716636-4 (Version None)
Quarter: 2005Q3

REPORT INFORMATION
  Report Type: 
  Country: None (occurrence: None)
  Receive Date: 20050714
  Receipt Date: 20050707
  Transmission Date: 20060218
  Serious: Yes (Death, Hospitalization)
  Sender: FDA-Public Use
  Company Number: COV2-2005-00109

PATIENT
  Age: 60 Year
  Sex: Female

DRUGS (1)
  1. FOSRENOL [Suspect]
     Indication: HYPERPHOSPHATAEMIA
     Dosage: 3750 MG, 1X/DAY; QD, ORAL
     Route: 048
     Dates: start: 20050323, end: 20050627

REACTIONS (3)
  - CARDIAC ARREST [None]
  - PROCEDURAL COMPLICATION [None]
  - THERAPY NON-RESPONDER [None]
